FAERS Safety Report 9796253 (Version 2)
Quarter: 2014Q2

REPORT INFORMATION
  Report Type: Spontaneous
  Country: GB (occurrence: GB)
  Receive Date: 20140103
  Receipt Date: 20140417
  Transmission Date: 20141212
  Serious: Yes (Death)
  Sender: FDA-Public Use
  Company Number: GB-B.I. PHARMACEUTICALS,INC./RIDGEFIELD-2014-BI-00126UK

PATIENT
  Age: 75 Year
  Sex: Female
  Weight: 70 kg

DRUGS (5)
  1. PRADAXA [Suspect]
     Indication: ATRIAL FIBRILLATION
     Dosage: 220 MG
     Route: 048
  2. ATENOLOL [Concomitant]
     Route: 065
  3. ATORVASTATIN [Concomitant]
     Route: 065
  4. PERINDOPRIL [Concomitant]
     Route: 065
  5. RANITIDINE [Concomitant]
     Route: 065

REACTIONS (8)
  - Cerebral haemorrhage [Fatal]
  - Pulmonary embolism [Fatal]
  - Extravasation blood [Fatal]
  - Haemothorax [Fatal]
  - Retroperitoneal haemorrhage [Fatal]
  - Traumatic lung injury [Fatal]
  - Pulmonary contusion [Fatal]
  - Brain injury [Fatal]
